FAERS Safety Report 8112005-8 (Version None)
Quarter: 2011Q4

REPORT INFORMATION
  Report Type: 
  Country: None (occurrence: None)
  Receive Date: 20111223
  Receipt Date: 20110826
  Transmission Date: 20120403
  Serious: Yes (Congenital Anomaly)
  Sender: FDA-Public Use
  Company Number: PHEH2011US02665

PATIENT
  Sex: Female

DRUGS (1)
  1. LETROZOLE [Suspect]

REACTIONS (1)
  - MATERNAL EXPOSURE DURING PREGNANCY [None]
